FAERS Safety Report 10613836 (Version 2)
Quarter: 2014Q4

REPORT INFORMATION
  Report Type: Spontaneous
  Country: BR (occurrence: BR)
  Receive Date: 20141128
  Receipt Date: 20141212
  Transmission Date: 20150529
  Serious: Yes (Other)
  Sender: FDA-Public Use
  Company Number: BR-SA-2014SA160692

PATIENT
  Sex: Male
  Weight: 73 kg

DRUGS (7)
  1. NOVORAPID [Concomitant]
     Active Substance: INSULIN ASPART
     Dates: start: 2014
  2. SIMVASTATIN. [Concomitant]
     Active Substance: SIMVASTATIN
  3. ACETYLSALICYLIC ACID [Concomitant]
     Active Substance: ASPIRIN
     Indication: CARDIAC OPERATION
  4. LOSARTAN [Concomitant]
     Active Substance: LOSARTAN
     Indication: CARDIAC OPERATION
  5. OSCAL D [Concomitant]
     Active Substance: CALCIUM CARBONATE\CHOLECALCIFEROL
     Indication: PROPHYLAXIS
     Dates: start: 2006
  6. SOLOSTAR [Concomitant]
     Active Substance: DEVICE
  7. LANTUS SOLOSTAR [Suspect]
     Active Substance: INSULIN GLARGINE
     Indication: TYPE 2 DIABETES MELLITUS
     Route: 065

REACTIONS (11)
  - Retinal disorder [Not Recovered/Not Resolved]
  - Road traffic accident [Unknown]
  - Atrioventricular block [Recovered/Resolved]
  - Fall [Unknown]
  - Dizziness [Recovered/Resolved]
  - Cataract operation [Unknown]
  - Headache [Recovered/Resolved]
  - Visual impairment [Not Recovered/Not Resolved]
  - Visual acuity reduced [Not Recovered/Not Resolved]
  - Pain [Recovered/Resolved]
  - Back pain [Recovered/Resolved]

NARRATIVE: CASE EVENT DATE: 2014
